FAERS Safety Report 7664594 (Version 33)
Quarter: 2014Q3

REPORT INFORMATION
  Report Type: Spontaneous
  Country: US (occurrence: US)
  Receive Date: 20101111
  Receipt Date: 20140717
  Transmission Date: 20150326
  Serious: Yes (Other)
  Sender: FDA-Public Use
  Company Number: PHEH2010US03864

PATIENT
  Sex: Female
  Weight: 62.59 kg

DRUGS (17)
  1. ZOMETA [Suspect]
     Active Substance: ZOLEDRONIC ACID
     Dosage: UNK UKN, UNK
     Dates: end: 2008
  2. FEMARA [Concomitant]
     Active Substance: LETROZOLE
     Dosage: 2.5 MG, UNK
  3. LOPRESSOR [Concomitant]
     Active Substance: METOPROLOL TARTRATE
     Dosage: 50 MG, UNK
  4. METFORMIN [Concomitant]
     Active Substance: METFORMIN HYDROCHLORIDE
     Dosage: 500 MG, UNK
  5. CLINDAMYCIN [Concomitant]
     Active Substance: CLINDAMYCIN\CLINDAMYCIN PHOSPHATE
  6. COLACE [Concomitant]
     Active Substance: DOCUSATE SODIUM
  7. AMARYL [Concomitant]
     Active Substance: GLIMEPIRIDE
     Dosage: 2 MG, UNK
  8. ASPIRIN. [Concomitant]
     Active Substance: ASPIRIN
  9. PERIDEX [Concomitant]
     Active Substance: CHLORHEXIDINE GLUCONATE
  10. SENNA [Concomitant]
     Active Substance: SENNA LEAF\SENNOSIDES\SENNOSIDES A AND B
  11. DARVOCET-N 100 [Concomitant]
     Active Substance: ACETAMINOPHEN\PROPOXYPHENE NAPSYLATE
  12. PLAVIX [Concomitant]
     Active Substance: CLOPIDOGREL BISULFATE
     Dosage: 75 MG, UNK
  13. ANTICOAGULANTS [Concomitant]
     Active Substance: UNSPECIFIED INGREDIENT
  14. ZOCOR [Concomitant]
     Active Substance: SIMVASTATIN
  15. ZOMETA [Suspect]
     Active Substance: ZOLEDRONIC ACID
     Indication: METASTASES TO BONE
     Dosage: 4 MG, QMO
     Route: 042
  16. SIMVASTATIN. [Concomitant]
     Active Substance: SIMVASTATIN
     Dosage: 20 MG, UNK
  17. CENTRUM SILVER [Concomitant]
     Active Substance: VITAMINS

REACTIONS (99)
  - Blood cholesterol increased [Unknown]
  - Infection [Unknown]
  - Physical disability [Unknown]
  - Pleural effusion [Unknown]
  - Asthma [Unknown]
  - Facet joint syndrome [Unknown]
  - Dermatitis contact [Unknown]
  - Vascular calcification [Unknown]
  - Nausea [Unknown]
  - Lymphocytic infiltration [Unknown]
  - Oedema [Unknown]
  - Malignant neoplasm progression [Unknown]
  - Gingival recession [Unknown]
  - Cervical spine flattening [Unknown]
  - Injury [Unknown]
  - Swelling face [Unknown]
  - Oral pain [Unknown]
  - Deformity [Unknown]
  - Ilium fracture [Unknown]
  - Arteriosclerosis [Unknown]
  - Intervertebral disc degeneration [Unknown]
  - Hiatus hernia [Unknown]
  - Pulmonary valve incompetence [Unknown]
  - Intervertebral disc protrusion [Unknown]
  - Anaemia [Unknown]
  - Oedema peripheral [Unknown]
  - Osteopenia [Unknown]
  - Confusional state [Unknown]
  - Ischaemia [Unknown]
  - Gastrointestinal haemorrhage [Unknown]
  - Vulvovaginal pain [Unknown]
  - Mitral valve incompetence [Unknown]
  - Ulcer [Unknown]
  - Dyspnoea [Unknown]
  - Back pain [Unknown]
  - Xerosis [Unknown]
  - Gastric ulcer haemorrhage [Unknown]
  - Coronary artery insufficiency [Unknown]
  - Dyspnoea paroxysmal nocturnal [Unknown]
  - Abdominal tenderness [Unknown]
  - Purulent discharge [Unknown]
  - Cellulitis [Unknown]
  - Diverticulum [Unknown]
  - Osteoarthritis [Unknown]
  - Left atrial dilatation [Unknown]
  - Aortic calcification [Unknown]
  - Lung infiltration [Unknown]
  - Hyperplasia [Unknown]
  - Lymphoedema [Unknown]
  - Coronary artery disease [Unknown]
  - Osteonecrosis of jaw [Unknown]
  - Hypertension [Unknown]
  - Pinguecula [Unknown]
  - Haemorrhoids [Unknown]
  - Pulmonary oedema [Unknown]
  - Cough [Unknown]
  - Chest pain [Unknown]
  - Gastritis [Unknown]
  - Gastrooesophageal reflux disease [Unknown]
  - Benign neoplasm of skin [Unknown]
  - Wound [Recovered/Resolved]
  - Metastases to bone [Unknown]
  - Intervertebral disc space narrowing [Unknown]
  - Stress [Unknown]
  - Liver disorder [Unknown]
  - Haemoptysis [Unknown]
  - Angina pectoris [Unknown]
  - Bronchitis [Unknown]
  - Breast calcifications [Unknown]
  - Large intestine benign neoplasm [Unknown]
  - Arthritis [Unknown]
  - Dyslipidaemia [Unknown]
  - Gingival pain [Unknown]
  - Spinal osteoarthritis [Unknown]
  - Haematemesis [Unknown]
  - Tricuspid valve incompetence [Unknown]
  - Thrombocytopenia [Unknown]
  - Sinus bradycardia [Unknown]
  - Aortic arteriosclerosis [Unknown]
  - Pain [Unknown]
  - Osteosclerosis [Unknown]
  - Abdominal discomfort [Unknown]
  - Exostosis [Unknown]
  - Spondylolisthesis [Unknown]
  - Neck pain [Unknown]
  - Emotional distress [Unknown]
  - Atelectasis [Unknown]
  - Osteoporosis [Unknown]
  - Urinary tract infection [Unknown]
  - Cholelithiasis [Unknown]
  - Fall [Unknown]
  - Dyspepsia [Unknown]
  - Left ventricular hypertrophy [Unknown]
  - Bladder dilatation [Unknown]
  - Skin papilloma [Unknown]
  - Hyperkeratosis [Unknown]
  - Upper-airway cough syndrome [Unknown]
  - Ovarian cyst [Unknown]
  - Vertebral osteophyte [Unknown]
